FAERS Safety Report 4951042-9 (Version None)
Quarter: 2006Q1

REPORT INFORMATION
  Report Type: 
  Country: None (occurrence: None)
  Receive Date: 20060322
  Receipt Date: 20050928
  Transmission Date: 20060701
  Serious: Yes (Hospitalization, Other)
  Sender: FDA-Public Use
  Company Number: US-MERCK-0509USA04372

PATIENT
  Age: 50 Year
  Sex: Male

DRUGS (1)
  1. VIOXX [Suspect]
     Route: 048

REACTIONS (13)
  - ADVERSE EVENT [None]
  - APPENDICECTOMY [None]
  - ARTHROPATHY [None]
  - ATRIAL SEPTAL DEFECT [None]
  - CAROTID ARTERY STENOSIS [None]
  - CEREBROVASCULAR ACCIDENT [None]
  - EPICONDYLITIS [None]
  - ESSENTIAL HYPERTENSION [None]
  - NUCLEAR MAGNETIC RESONANCE IMAGING BRAIN ABNORMAL [None]
  - PARAESTHESIA [None]
  - RHINITIS SEASONAL [None]
  - VARICOSE VEIN [None]
  - VENA CAVA THROMBOSIS [None]
